FAERS Safety Report 26157588 (Version 1)
Quarter: 2025Q4

REPORT INFORMATION
  Report Type: Spontaneous
  Country: US (occurrence: None)
  Receive Date: 20251212
  Receipt Date: 20251212
  Transmission Date: 20260117
  Serious: Yes (Other)
  Sender: FDA-CTU
  Company Number: None

PATIENT
  Age: 34 Year
  Sex: Male

DRUGS (4)
  1. YEZTUGO [Suspect]
     Active Substance: LENACAPAVIR SODIUM
     Dosage: 600 MG DAILY ORAL
     Route: 048
     Dates: start: 20251209
  2. YEZTUGO [Suspect]
     Active Substance: LENACAPAVIR SODIUM
     Dosage: 927 MG SUBCUTANEOUS
     Route: 058
     Dates: start: 20251209
  3. lenacapavir 300 mg tab [Concomitant]
     Dates: start: 20251209
  4. lenacapavir 309 mg/ml [Concomitant]
     Dates: start: 20251209

REACTIONS (4)
  - Presyncope [None]
  - Loss of consciousness [None]
  - Cardio-respiratory arrest [None]
  - Head injury [None]
